FAERS Safety Report 15311065 (Version 2)
Quarter: 2018Q3

REPORT INFORMATION
  Report Type: Report from Study
  Country: None (occurrence: US)
  Receive Date: 20180823
  Receipt Date: 20180828
  Transmission Date: 20181010
  Serious: Yes (Hospitalization, Other)
  Sender: FDA-Public Use
  Company Number: US-ABBVIE-18K-163-2457616-00

PATIENT
  Sex: Male

DRUGS (1)
  1. HUMIRA [Suspect]
     Active Substance: ADALIMUMAB
     Indication: ANKYLOSING SPONDYLITIS
     Route: 058
     Dates: start: 201806, end: 20180803

REACTIONS (10)
  - Spinal pain [Recovering/Resolving]
  - Sneezing [Unknown]
  - Back pain [Recovering/Resolving]
  - Post procedural discharge [Recovering/Resolving]
  - Pain in extremity [Recovering/Resolving]
  - Intervertebral disc protrusion [Unknown]
  - Spinal disorder [Unknown]
  - Hypoaesthesia [Not Recovered/Not Resolved]
  - Herpes zoster [Recovering/Resolving]
  - Pain [Unknown]

NARRATIVE: CASE EVENT DATE: 2018
